FAERS Safety Report 17790427 (Version 1)
Quarter: 2020Q2

REPORT INFORMATION
  Report Type: Spontaneous
  Country: JP (occurrence: JP)
  Receive Date: 20200515
  Receipt Date: 20200515
  Transmission Date: 20200714
  Serious: Yes (Other)
  Sender: FDA-Public Use
  Company Number: NVSJ2020JP005012

PATIENT
  Age: 82 Year
  Sex: Male

DRUGS (4)
  1. INSULIN [Concomitant]
     Active Substance: INSULIN NOS
     Indication: TYPE 2 DIABETES MELLITUS
     Dosage: 100 IU
     Route: 065
  2. CANAGLU [Concomitant]
     Active Substance: CANAGLIFLOZIN
     Indication: PRODUCT USED FOR UNKNOWN INDICATION
     Dosage: 100 MG
     Route: 065
  3. EQUMET [Suspect]
     Active Substance: METFORMIN HYDROCHLORIDE\VILDAGLIPTIN
     Indication: TYPE 2 DIABETES MELLITUS
     Dosage: 1 DF: METFORMIN250MG, VILDAGLIPTIN50MG
     Route: 048
  4. TRULICITY [Suspect]
     Active Substance: DULAGLUTIDE
     Indication: TYPE 2 DIABETES MELLITUS
     Dosage: UNK UNK, QW
     Route: 058

REACTIONS (1)
  - Diabetes mellitus inadequate control [Unknown]
